FAERS Safety Report 22184338 (Version 6)
Quarter: 2024Q1

REPORT INFORMATION
  Report Type: Report from Study
  Country: US (occurrence: US)
  Receive Date: 20230407
  Receipt Date: 20240303
  Transmission Date: 20240409
  Serious: Yes (Hospitalization, Other)
  Sender: FDA-Public Use
  Company Number: US-ABBVIE-4715374

PATIENT
  Age: 63 Year
  Sex: Male
  Weight: 73 kg

DRUGS (26)
  1. VENCLEXTA [Suspect]
     Active Substance: VENETOCLAX
     Indication: Plasma cell myeloma
     Dosage: FORM STRENGTH: 100MG?LAST ADMIN DATE- 2023
     Route: 048
     Dates: start: 20231003
  2. VENCLEXTA [Suspect]
     Active Substance: VENETOCLAX
     Indication: Plasma cell myeloma
     Dosage: FORM STRENGTH: 100MG
     Route: 048
     Dates: start: 202311
  3. VENCLEXTA [Suspect]
     Active Substance: VENETOCLAX
     Indication: Plasma cell myeloma
     Dosage: TAKE 2 CHEMO TABLETS (200 MG TOTAL), FORM STRENGTH 100 MG
     Route: 048
     Dates: start: 20221003, end: 20230109
  4. VENCLEXTA [Suspect]
     Active Substance: VENETOCLAX
     Indication: Plasma cell myeloma
     Dosage: FORM STRENGTH: 200 MG, END DATE 2023
     Route: 048
     Dates: start: 20230227
  5. VENCLEXTA [Suspect]
     Active Substance: VENETOCLAX
     Indication: Plasma cell myeloma
     Dosage: THERAPY CESSATION DATE: 2022?FORM STRENGTH: 100 MG
     Route: 048
     Dates: start: 202209
  6. VENCLEXTA [Suspect]
     Active Substance: VENETOCLAX
     Indication: Plasma cell myeloma
     Dosage: FORM STRENGTH: 100MG
     Route: 048
     Dates: start: 20240216
  7. IVERMECTIN [Concomitant]
     Active Substance: IVERMECTIN
     Indication: Strongyloides test positive
  8. ZOFRAN [Concomitant]
     Active Substance: ONDANSETRON HYDROCHLORIDE
     Indication: Nausea
     Dosage: ODT; FORM STRENGTH: 4 MILLIGRAM FREQUENCY TEXT: 4 MG EVERY EIGHT HOURS AS NEEDED
     Route: 048
  9. XELPROS [Concomitant]
     Active Substance: LATANOPROST
     Indication: Product used for unknown indication
     Dosage: 0.005 % DROPS, EMULSION/FREQUENCY TEXT: 1 DROP INTO EACH EYES EVERY EVENING
     Route: 047
  10. VIAGRA [Concomitant]
     Active Substance: SILDENAFIL CITRATE
     Indication: Erectile dysfunction
     Dosage: FORM STRENGTH: 100 MILLIGRAM; FREQUENCY: 100 MG AS NEEDED
     Route: 048
  11. FERRIPROX [Concomitant]
     Active Substance: DEFERIPRONE
     Indication: Product used for unknown indication
     Dosage: TAKE TABLETS (3000 MG) BY MOUTH EVELY^ MORNING AND 2 TABLETS (2000 MG) BY MOUTH?FORM STRENGTH: 100MG
     Route: 048
     Dates: start: 20230320
  12. DEXAMETHASONE [Concomitant]
     Active Substance: DEXAMETHASONE
     Indication: Product used for unknown indication
     Dates: start: 200703
  13. KENALOG [Concomitant]
     Active Substance: TRIAMCINOLONE ACETONIDE
     Indication: Irritability
     Dosage: APPLY 1 APPLICATION TOPICALLY 2 (TWO) TIMES A DAY AS NEEDED FOR IRRITATION; FORM STRENGTH: 0.1 PE...
     Route: 061
  14. MG PLUS PROTEIN [Concomitant]
     Indication: Product used for unknown indication
     Dosage: FORM STRENGTH: 133 MG
     Route: 048
  15. PROGRAF [Concomitant]
     Active Substance: TACROLIMUS
     Indication: Product used for unknown indication
     Dosage: TAKE 2 CAPSULES (2 MG TOTAL) BY MOUTH TWO TIMES A DAY?FORM STRENGTH: 1 MILLIGRAM
     Route: 048
  16. DELTASONE [Concomitant]
     Active Substance: PREDNISONE
     Indication: Product used for unknown indication
     Dosage: FORM STRENGTH: 5 MILLIGRAM
     Route: 048
  17. PEPCID [Concomitant]
     Active Substance: FAMOTIDINE
     Indication: Product used for unknown indication
     Dosage: FORM STRENGTH: 20 MILLIGRAM?FREQUENCY: ONCE DAILY EVERY MORNING
     Route: 048
  18. TYLENOL [Concomitant]
     Active Substance: ACETAMINOPHEN
     Indication: Pain
     Dosage: FORM STRENGTH: 500 MILLIGRAM?MILD PAIN (1-3)
     Route: 048
  19. CYCLOPHOSPHAMIDE [Concomitant]
     Active Substance: CYCLOPHOSPHAMIDE
     Indication: Product used for unknown indication
     Dates: start: 200712, end: 200805
  20. BORTEZOMIB [Concomitant]
     Active Substance: BORTEZOMIB
     Indication: Product used for unknown indication
     Dates: start: 200703
  21. SODIUM BICARBONATE [Concomitant]
     Active Substance: SODIUM BICARBONATE
     Indication: Product used for unknown indication
     Dosage: FORM STRENGTH: 650 MILLIGRAM
     Route: 048
  22. LOPERAMIDE [Concomitant]
     Active Substance: LOPERAMIDE
     Indication: Diarrhoea
     Dosage: TIME INTERVAL: AS NECESSARY: FREQUENCY TEXT: TAKE 2 MG BY MOUTH AS NEEDED FOR DIARRHEA FORM STREN...
     Route: 048
  23. ZOVIRAX [Concomitant]
     Active Substance: ACYCLOVIR
     Indication: Product used for unknown indication
     Dosage: FORM STRENGTH: 400 MILLIGRAM
     Route: 048
  24. VITAMIN B12 [Concomitant]
     Active Substance: CYANOCOBALAMIN
     Indication: Product used for unknown indication
     Dosage: FORM STRENGTH: 1000 MICROGRAM
     Route: 048
  25. UROXATRAL [Concomitant]
     Active Substance: ALFUZOSIN HYDROCHLORIDE
     Indication: Product used for unknown indication
     Dosage: 10 MG BY MOUTH NIGHTLY?FORM STRENGTH: 10 MILLIGRAM
     Route: 048
  26. TESTOSTERONE [Concomitant]
     Active Substance: TESTOSTERONE
     Indication: Product used for unknown indication
     Dosage: 20.25 MG/1.25 GRAM (1.62 %) GLPM GEL IN METERED DOSE PUMP;4 PUMP TOPICALLY ONCE DAILY
     Route: 061

REACTIONS (68)
  - Thrombocytopenia [Recovering/Resolving]
  - Oral disorder [Not Recovered/Not Resolved]
  - Glaucoma [Not Recovered/Not Resolved]
  - Neutropenia [Not Recovered/Not Resolved]
  - Sarcopenia [Not Recovered/Not Resolved]
  - Generalised oedema [Not Recovered/Not Resolved]
  - Hyperparathyroidism secondary [Not Recovered/Not Resolved]
  - Transaminases increased [Not Recovered/Not Resolved]
  - Osteoporosis [Not Recovered/Not Resolved]
  - Dyspnoea [Unknown]
  - Hypogonadism male [Not Recovered/Not Resolved]
  - Blood loss anaemia [Not Recovered/Not Resolved]
  - Coagulopathy [Not Recovered/Not Resolved]
  - Asthenia [Not Recovered/Not Resolved]
  - Osteoarthritis [Not Recovered/Not Resolved]
  - Pleural effusion [Not Recovered/Not Resolved]
  - Hyperglycaemia [Not Recovered/Not Resolved]
  - Chronic kidney disease [Unknown]
  - Rotator cuff syndrome [Not Recovered/Not Resolved]
  - Off label use [Unknown]
  - Dysuria [Not Recovered/Not Resolved]
  - Haematuria [Recovered/Resolved]
  - Dyspnoea exertional [Unknown]
  - Chest pain [Not Recovered/Not Resolved]
  - Urinary tract infection [Not Recovered/Not Resolved]
  - Hypomagnesaemia [Not Recovered/Not Resolved]
  - Pulmonary valve incompetence [Not Recovered/Not Resolved]
  - Post procedural complication [Not Recovered/Not Resolved]
  - Dry eye [Not Recovered/Not Resolved]
  - Hyperbilirubinaemia [Not Recovered/Not Resolved]
  - Hyperkalaemia [Not Recovered/Not Resolved]
  - Bone density decreased [Not Recovered/Not Resolved]
  - Latent tuberculosis [Not Recovered/Not Resolved]
  - Immunodeficiency [Unknown]
  - Essential hypertension [Not Recovered/Not Resolved]
  - Headache [Unknown]
  - Benign prostatic hyperplasia [Not Recovered/Not Resolved]
  - Electrolyte imbalance [Not Recovered/Not Resolved]
  - Haemochromatosis [Not Recovered/Not Resolved]
  - Spinal compression fracture [Not Recovered/Not Resolved]
  - Nausea [Recovered/Resolved]
  - Blood creatinine increased [Not Recovered/Not Resolved]
  - Hypoaesthesia [Unknown]
  - Diarrhoea [Unknown]
  - Pancytopenia [Not Recovered/Not Resolved]
  - Increased tendency to bruise [Unknown]
  - Oedema [Not Recovered/Not Resolved]
  - Vomiting [Recovered/Resolved]
  - Stress [Not Recovered/Not Resolved]
  - Liver function test increased [Not Recovered/Not Resolved]
  - Visual impairment [Not Recovered/Not Resolved]
  - Parvovirus B19 infection [Not Recovered/Not Resolved]
  - Type V hyperlipidaemia [Not Recovered/Not Resolved]
  - Fibula fracture [Not Recovered/Not Resolved]
  - Hypophosphataemia [Not Recovered/Not Resolved]
  - Hypoparathyroidism [Unknown]
  - Obstruction [Not Recovered/Not Resolved]
  - Haemorrhage [Unknown]
  - Rib fracture [Unknown]
  - Iron overload [Unknown]
  - Arterial insufficiency [Not Recovered/Not Resolved]
  - Red blood cell transfusion [Not Recovered/Not Resolved]
  - Fall [Recovered/Resolved]
  - Platelet count decreased [Unknown]
  - Dyspepsia [Not Recovered/Not Resolved]
  - Illness [Unknown]
  - Anaemia [Unknown]
  - Lower urinary tract symptoms [Not Recovered/Not Resolved]

NARRATIVE: CASE EVENT DATE: 20230320
